FAERS Safety Report 4491521-4 (Version None)
Quarter: 2004Q4

REPORT INFORMATION
  Report Type: 
  Country: None (occurrence: None)
  Receive Date: 20041101
  Receipt Date: 20041020
  Transmission Date: 20050328
  Serious: Yes (Life-Threatening, Other)
  Sender: FDA-Public Use
  Company Number: 2004081543

PATIENT
  Age: 68 Year
  Sex: Female

DRUGS (4)
  1. QUINAPRIL HCL [Suspect]
     Indication: BLOOD PRESSURE INCREASED
     Dosage: 20 MG, ORAL
     Route: 048
     Dates: start: 20041002, end: 20041018
  2. CARDENALIN (DOXAZOSIN) [Suspect]
     Indication: BLOOD PRESSURE INCREASED
     Dosage: 2 MG, ORAL
     Route: 048
     Dates: start: 20041002, end: 20041018
  3. VANCOMYCIN HCL [Suspect]
     Indication: SEPSIS
     Dosage: 1 GRAM, INTRAVENOUS
     Route: 042
     Dates: start: 20041006, end: 20041015
  4. GALENIC /PANIPENEM/BETAMIRON/ (BETAMIPRON, PANIPENEM) [Suspect]
     Indication: SEPSIS
     Dosage: 1 GRAM, INTRAVENOUS
     Route: 042
     Dates: start: 20041006, end: 20041015

REACTIONS (1)
  - PANCYTOPENIA [None]
